FAERS Safety Report 10168407 (Version 1)
Quarter: 2014Q2

REPORT INFORMATION
  Report Type: Report from Study
  Country: US (occurrence: US)
  Receive Date: 20140513
  Receipt Date: 20140513
  Transmission Date: 20141212
  Serious: Yes (Other)
  Sender: FDA-Public Use
  Company Number: US-ROCHE-1399174

PATIENT
  Age: 9 Year
  Sex: Female
  Weight: 47.5 kg

DRUGS (2)
  1. NUTROPIN AQ [Suspect]
     Indication: TURNER^S SYNDROME
     Route: 058
  2. ADDERALL XR [Concomitant]
     Route: 048

REACTIONS (7)
  - Insulin-like growth factor increased [Unknown]
  - Blood triglycerides increased [Unknown]
  - Blood follicle stimulating hormone increased [Unknown]
  - Eating disorder [Unknown]
  - Migraine [Unknown]
  - Abdominal discomfort [Unknown]
  - Headache [Unknown]
